FAERS Safety Report 14519425 (Version 1)
Quarter: 2018Q1

REPORT INFORMATION
  Report Type: Spontaneous
  Country: US (occurrence: US)
  Receive Date: 20180209
  Receipt Date: 20180209
  Transmission Date: 20180509
  Serious: Yes (Life-Threatening, Hospitalization)
  Sender: FDA-Public Use
  Company Number: None

PATIENT
  Age: 67 Year
  Sex: Male
  Weight: 82.8 kg

DRUGS (10)
  1. PALONOSETRON. [Concomitant]
     Active Substance: PALONOSETRON HYDROCHLORIDE
  2. PANTOPRAZOLE [Concomitant]
     Active Substance: PANTOPRAZOLE
  3. SULFAMETHOXAZOLE-TRIMETHOPRIM [Concomitant]
     Active Substance: SULFAMETHOXAZOLE\TRIMETHOPRIM
  4. DEXAMETHASONE. [Concomitant]
     Active Substance: DEXAMETHASONE
  5. LISINOPRIL. [Concomitant]
     Active Substance: LISINOPRIL
  6. ALLOPURINOL. [Concomitant]
     Active Substance: ALLOPURINOL
  7. CARFILZOMIB [Suspect]
     Active Substance: CARFILZOMIB
     Indication: ADULT T-CELL LYMPHOMA/LEUKAEMIA
     Dosage: ?          OTHER FREQUENCY:ONCE;?
     Route: 042
     Dates: start: 20180131, end: 20180131
  8. MAGNESIUM OXIDE. [Concomitant]
     Active Substance: MAGNESIUM OXIDE
  9. ROMIDEPSIN. [Concomitant]
     Active Substance: ROMIDEPSIN
  10. ACYCLOVIR. [Concomitant]
     Active Substance: ACYCLOVIR

REACTIONS (15)
  - Dizziness [None]
  - Anaemia [None]
  - Thrombocytopenia [None]
  - Thrombotic microangiopathy [None]
  - Hypertension [None]
  - Lymphoma [None]
  - Asthenia [None]
  - Malignant neoplasm progression [None]
  - Mental status changes [None]
  - Vomiting [None]
  - Hiccups [None]
  - Haematuria [None]
  - Nausea [None]
  - Histiocytosis haematophagic [None]
  - Acute kidney injury [None]

NARRATIVE: CASE EVENT DATE: 20180201
